FAERS Safety Report 7338581-0 (Version None)
Quarter: 2011Q1

REPORT INFORMATION
  Report Type: 
  Country: None (occurrence: None)
  Receive Date: 20110308
  Receipt Date: 20110223
  Transmission Date: 20110831
  Serious: Yes (Hospitalization)
  Sender: FDA-Public Use
  Company Number: US-ELI_LILLY_AND_COMPANY-US201102007055

PATIENT
  Age: 76 Year
  Sex: Female

DRUGS (11)
  1. NORVASC [Concomitant]
  2. CYMBALTA [Suspect]
     Indication: NEUROPATHY PERIPHERAL
     Dosage: 30 MG, DAILY (1/D)
  3. ANTIDEPRESSANTS [Concomitant]
  4. BETA BLOCKING AGENTS [Concomitant]
  5. AMBIEN [Concomitant]
  6. CYMBALTA [Suspect]
     Dosage: 60 MG, DAILY (1/D)
  7. LORAZEPAM [Concomitant]
  8. PERCOCET [Concomitant]
  9. INSULIN [Concomitant]
  10. DRUG USED IN DIABETES [Concomitant]
  11. ARICEPT [Concomitant]

REACTIONS (1)
  - HOSPITALISATION [None]
